FAERS Safety Report 6600757-5 (Version None)
Quarter: 2010Q1

REPORT INFORMATION
  Report Type: 
  Country: None (occurrence: None)
  Receive Date: 20100225
  Receipt Date: 20100218
  Transmission Date: 20100710
  Serious: Yes (Hospitalization)
  Sender: FDA-Public Use
  Company Number: DE-ABBOTT-10P-062-0620766-00

PATIENT
  Sex: Male
  Weight: 72 kg

DRUGS (4)
  1. HUMIRA [Suspect]
     Indication: CROHN'S DISEASE
     Route: 058
     Dates: start: 20090831, end: 20091221
  2. HUMIRA [Suspect]
     Route: 058
     Dates: start: 20100210
  3. ANTIHYPERTENSIVE DRUG (NOT SPECIFIED) [Concomitant]
     Indication: HYPERTENSION
  4. DRUG AGAINST HYPERTRIGLYCERIDEMIA (NOT SPECIFIED) [Concomitant]
     Indication: HYPERTRIGLYCERIDAEMIA

REACTIONS (2)
  - CROHN'S DISEASE [None]
  - GASTROINTESTINAL HAEMORRHAGE [None]
